FAERS Safety Report 8170100-1 (Version None)
Quarter: 2012Q1

REPORT INFORMATION
  Report Type: 
  Country: None (occurrence: None)
  Receive Date: 20120228
  Receipt Date: 20120221
  Transmission Date: 20120608
  Serious: Yes (Hospitalization, Other)
  Sender: FDA-Public Use
  Company Number: FR-TEVA-321205ISR

PATIENT
  Sex: Male

DRUGS (19)
  1. LENALIDOMIDE [Suspect]
     Dosage: 10 MILLIGRAM;
     Route: 048
     Dates: start: 20090511
  2. PREVISCAN (TABLETS) [Concomitant]
     Indication: THROMBOSIS PROPHYLAXIS
     Route: 048
     Dates: start: 20090923
  3. VERATRAN [Concomitant]
     Indication: NERVOUSNESS
     Route: 048
     Dates: start: 20111029, end: 20111201
  4. LENALIDOMIDE [Suspect]
     Dosage: 15 MILLIGRAM;
     Route: 048
     Dates: start: 20111130, end: 20111220
  5. PRAVASTATINE SODIUM [Concomitant]
     Indication: HYPERCHOLESTEROLAEMIA
     Route: 048
     Dates: start: 20110101
  6. RABEPRAZOLE SODIUM [Concomitant]
     Indication: ABDOMINAL PAIN UPPER
     Route: 048
     Dates: start: 20110928, end: 20111201
  7. BIPERIDYS [Concomitant]
     Indication: ABDOMINAL PAIN UPPER
     Dosage: 180 MILLIGRAM;
     Route: 048
     Dates: start: 20111029, end: 20111201
  8. PREVISCAN (TABLETS) [Concomitant]
     Dosage: 15MG DAY1 AND 2, 20MG DAYS 3
     Route: 048
     Dates: start: 20100430, end: 20120105
  9. DEXAMETHASONE [Suspect]
     Dosage: 40 MILLIGRAM;
     Dates: end: 20111228
  10. LENALIDOMIDE [Suspect]
     Dosage: 15 MILLIGRAM;
     Route: 048
     Dates: end: 20111228
  11. AMIODARONE HCL [Concomitant]
     Indication: ARRHYTHMIA
     Dosage: 142.8571 MILLIGRAM;
     Route: 048
     Dates: start: 20110101
  12. IPERTEN [Concomitant]
     Indication: HYPERTENSION
     Route: 048
     Dates: start: 20081001
  13. SPASFON [Concomitant]
     Indication: ABDOMINAL PAIN UPPER
     Route: 048
     Dates: start: 20111201
  14. DEXAMETHASONE [Suspect]
     Dosage: 40 MILLIGRAM;
     Dates: start: 20111130, end: 20111221
  15. TETRAZEPAM [Concomitant]
     Indication: BACK PAIN
     Route: 048
     Dates: start: 20090501
  16. CETOMAN [Concomitant]
     Indication: PROPHYLAXIS
     Dosage: 1 SAX
     Route: 048
     Dates: start: 20111029
  17. INDOMETHACIN [Concomitant]
     Indication: CATARACT
     Dosage: 16 GTT; OCU
     Dates: start: 20111124, end: 20111130
  18. DEXAMETHASONE [Suspect]
     Indication: MULTIPLE MYELOMA
     Dosage: 40 MILLIGRAM;
     Dates: start: 20090511
  19. CHIBRO-CADRON [Concomitant]
     Indication: CATARACT
     Dosage: 16 GTT;
     Dates: start: 20111124, end: 20111221

REACTIONS (1)
  - BURSITIS INFECTIVE STAPHYLOCOCCAL [None]
